FAERS Safety Report 17623289 (Version 1)
Quarter: 2020Q2

REPORT INFORMATION
  Report Type: Spontaneous
  Country: US (occurrence: US)
  Receive Date: 20200403
  Receipt Date: 20200403
  Transmission Date: 20200713
  Serious: Yes (Hospitalization)
  Sender: FDA-Public Use
  Company Number: None

PATIENT
  Sex: Female

DRUGS (11)
  1. AZITHROMYCINE [Concomitant]
     Active Substance: AZITHROMYCIN
  2. NASPAN [Concomitant]
  3. FERROUS SULFATE. [Concomitant]
     Active Substance: FERROUS SULFATE
  4. XIFAXAN [Concomitant]
     Active Substance: RIFAXIMIN
  5. CLARITIN [Concomitant]
     Active Substance: LORATADINE
  6. PANTOPRAZOLE [Concomitant]
     Active Substance: PANTOPRAZOLE
  7. STELARA [Suspect]
     Active Substance: USTEKINUMAB
     Indication: CROHN^S DISEASE
     Dosage: ?          OTHER FREQUENCY:EVERY 8 WEEKS;?
     Route: 058
     Dates: start: 20190424
  8. CALTRATE [Concomitant]
     Active Substance: CALCIUM CARBONATE
  9. CIPROFLOXACIN. [Concomitant]
     Active Substance: CIPROFLOXACIN
  10. OMNARIS [Concomitant]
     Active Substance: CICLESONIDE
  11. GEMFIBROZIL. [Concomitant]
     Active Substance: GEMFIBROZIL

REACTIONS (1)
  - Intestinal resection [None]
